FAERS Safety Report 9248290 (Version 1)
Quarter: 2013Q1

REPORT INFORMATION
  Report Type: Spontaneous
  Country: US (occurrence: None)
  Receive Date: 20130305
  Receipt Date: 20130305
  Transmission Date: 20140127
  Serious: Yes (Other)
  Sender: FDA-Public Use
  Company Number: 163-21880-12093168

PATIENT
  Age: 84 Year
  Sex: Male

DRUGS (4)
  1. REVLIMID [Suspect]
     Indication: PLASMA CELL MYELOMA
     Dosage: 25 MG , 21 IN 21 D, PO
     Route: 048
     Dates: start: 20120911
  2. POTASSIUM GLUCONATE (POTASSIUM GLUCONATE) UNKNOWN [Concomitant]
  3. PROCHLORPERAZINE MALEATE) (PROCHLORPERAZINE MALEATE) (UNKNOWN) [Concomitant]
  4. DEXAMETASONE (DEXAMETASONE) [Concomitant]

REACTIONS (1)
  - Red blood cell count decreased [None]
